FAERS Safety Report 4616819-8 (Version None)
Quarter: 2005Q1

REPORT INFORMATION
  Report Type: 
  Country: None (occurrence: None)
  Receive Date: 20050321
  Receipt Date: 20050311
  Transmission Date: 20050727
  Serious: Yes (Hospitalization)
  Sender: FDA-Public Use
  Company Number: 200510543GDS

PATIENT
  Age: 77 Year
  Sex: Male

DRUGS (5)
  1. ASPIRIN [Suspect]
     Dosage: 100 MG , QD, ORAL
     Route: 048
     Dates: end: 20050120
  2. POTASSIUM CHLORIDE [Concomitant]
  3. SORTIS [Concomitant]
  4. TEGRETOL [Concomitant]
  5. FOSAMAX [Concomitant]

REACTIONS (5)
  - ACCIDENT [None]
  - FALL [None]
  - HEAD INJURY [None]
  - HEADACHE [None]
  - SUBDURAL HAEMATOMA [None]
